FAERS Safety Report 7412474-2 (Version None)
Quarter: 2011Q2

REPORT INFORMATION
  Report Type: 
  Country: None (occurrence: None)
  Receive Date: 20110413
  Receipt Date: 20110404
  Transmission Date: 20111010
  Serious: Yes (Hospitalization, Disabling, Other)
  Sender: FDA-Public Use
  Company Number: PHBS2007JP14767

PATIENT
  Sex: Male
  Weight: 62 kg

DRUGS (19)
  1. NEORAL [Suspect]
     Indication: HEART TRANSPLANT
     Dosage: 150 MG/DAY
     Route: 048
     Dates: start: 20010319, end: 20010320
  2. PARIET [Concomitant]
  3. MOBIC [Concomitant]
     Indication: PAIN
     Dosage: 1 TABLET/DAY
     Dates: start: 20070920, end: 20070928
  4. CERTICAN [Suspect]
     Dosage: 1.5MG/D
     Route: 048
     Dates: start: 20070906, end: 20071010
  5. NEORAL [Suspect]
     Dosage: 200 MG/D
     Route: 048
     Dates: start: 20010321, end: 20070808
  6. LIPITOR [Concomitant]
  7. CERTICAN [Suspect]
     Indication: HEART TRANSPLANT
     Dosage: 1.5 MG/D
     Route: 048
     Dates: start: 20070805, end: 20070822
  8. CERTICAN [Suspect]
     Dosage: 1.75 MG/D
     Route: 048
     Dates: start: 20070823, end: 20070905
  9. BAKTAR [Concomitant]
  10. EMPECID [Concomitant]
     Route: 048
  11. NEORAL [Suspect]
     Dosage: 150 MG
     Route: 048
     Dates: start: 20070809
  12. CELLCEPT [Concomitant]
     Indication: HEART TRANSPLANT
     Dosage: 2.5 G
     Route: 048
     Dates: start: 20010322, end: 20070804
  13. NORVASC [Concomitant]
  14. URINORM [Concomitant]
  15. SODIUM BICARBONATE [Concomitant]
  16. CLARUTE [Concomitant]
  17. BLOPRESS [Concomitant]
  18. MYCOPHENOLATE MOFETIL [Concomitant]
  19. BUFERIN [Concomitant]

REACTIONS (21)
  - FEELING HOT [None]
  - SPEECH DISORDER [None]
  - ARTHRALGIA [None]
  - C-REACTIVE PROTEIN INCREASED [None]
  - DYSPHAGIA [None]
  - DRUG LEVEL DECREASED [None]
  - CORONARY ARTERY STENOSIS [None]
  - ABASIA [None]
  - HAEMATOCRIT DECREASED [None]
  - PURULENCE [None]
  - RED BLOOD CELL COUNT DECREASED [None]
  - ARTHRITIS [None]
  - GAIT DISTURBANCE [None]
  - QUALITY OF LIFE DECREASED [None]
  - ERYTHROPENIA [None]
  - HAEMORRHOIDS [None]
  - PAIN [None]
  - PYREXIA [None]
  - HAEMOGLOBIN DECREASED [None]
  - STOMATITIS [None]
  - ALOPECIA [None]
